FAERS Safety Report 6424781-0 (Version None)
Quarter: 2009Q4

REPORT INFORMATION
  Report Type: 
  Country: None (occurrence: None)
  Receive Date: 20091103
  Receipt Date: 20091023
  Transmission Date: 20100525
  Serious: Yes (Other)
  Sender: FDA-Public Use
  Company Number: US-JNJFOC-20091008025

PATIENT
  Sex: Female
  Weight: 90.72 kg

DRUGS (5)
  1. REMICADE [Suspect]
     Route: 042
  2. REMICADE [Suspect]
     Indication: PSORIATIC ARTHROPATHY
     Route: 042
  3. PLAVIX [Concomitant]
  4. INSULIN [Concomitant]
  5. DIABETES MEDICATION [Concomitant]
     Indication: DIABETES MELLITUS

REACTIONS (5)
  - BLOOD GLUCOSE INCREASED [None]
  - CORONARY ARTERY OCCLUSION [None]
  - PARATHYROIDECTOMY [None]
  - RASH [None]
  - SKIN INFECTION [None]
